FAERS Safety Report 6168400-X (Version None)
Quarter: 2009Q2

REPORT INFORMATION
  Report Type: 
  Country: None (occurrence: None)
  Receive Date: 20090427
  Receipt Date: 20090422
  Transmission Date: 20091009
  Serious: Yes (Hospitalization)
  Sender: FDA-Public Use
  Company Number: US-BRISTOL-MYERS SQUIBB COMPANY-14597629

PATIENT
  Age: 51 Year
  Sex: Female
  Weight: 89 kg

DRUGS (2)
  1. ABILIFY [Suspect]
     Indication: DEPRESSION
     Dosage: INTERRUPTED+RESTARTED IN NOV05;
     Route: 048
     Dates: start: 20010101, end: 20080101
  2. NOVOLIN 70/30 [Concomitant]

REACTIONS (3)
  - PANCREATIC CYST [None]
  - PANCREATITIS [None]
  - WEIGHT INCREASED [None]
